FAERS Safety Report 22206226 (Version 1)
Quarter: 2023Q2

REPORT INFORMATION
  Report Type: Report from Study
  Country: CO (occurrence: CO)
  Receive Date: 20230413
  Receipt Date: 20230413
  Transmission Date: 20230722
  Serious: Yes (Other)
  Sender: FDA-Public Use
  Company Number: CO-ABBVIE-4726305

PATIENT
  Age: 74 Year
  Sex: Female
  Weight: 69 kg

DRUGS (1)
  1. ZEMPLAR [Suspect]
     Active Substance: PARICALCITOL
     Indication: Hyperparathyroidism secondary
     Dosage: 2 MICROGRAM
     Route: 048
     Dates: start: 20201113, end: 20220413

REACTIONS (7)
  - Arteriovenous fistula site complication [Unknown]
  - Hypoaesthesia [Not Recovered/Not Resolved]
  - Crying [Not Recovered/Not Resolved]
  - Pain in extremity [Not Recovered/Not Resolved]
  - Pneumonia [Recovered/Resolved]
  - COVID-19 [Recovered/Resolved]
  - Insomnia [Not Recovered/Not Resolved]

NARRATIVE: CASE EVENT DATE: 20220301
